FAERS Safety Report 24009380 (Version 7)
Quarter: 2024Q4

REPORT INFORMATION
  Report Type: Spontaneous
  Country: CA (occurrence: CA)
  Receive Date: 20240625
  Receipt Date: 20241029
  Transmission Date: 20250115
  Serious: Yes (Other)
  Sender: CELLTRION
  Company Number: CA-PFIZER INC-202400195383

PATIENT

DRUGS (9)
  1. INFLECTRA [Suspect]
     Active Substance: INFLIXIMAB-DYYB
     Indication: Crohn^s disease
     Dosage: 10 MG/KG (1160 MG), EVERY 4 WEEKS
     Route: 042
     Dates: start: 20240517
  2. INFLECTRA [Suspect]
     Active Substance: INFLIXIMAB-DYYB
     Dosage: 10 MG/KG, EVERY 4 WEEKS (REINDUCTION W 0, 2 THEN Q4W)
     Route: 042
     Dates: start: 20240614
  3. INFLECTRA [Suspect]
     Active Substance: INFLIXIMAB-DYYB
     Dosage: 10 MG/KG (1160 MG), EVERY 4 WEEKS (REINDUCTION W 0, 2 THEN Q4W)
     Route: 042
     Dates: start: 20240711
  4. INFLECTRA [Suspect]
     Active Substance: INFLIXIMAB-DYYB
     Dosage: 10 MG/KG (1150 MG), EVERY 4 WEEKS
     Route: 042
     Dates: start: 20240809
  5. INFLECTRA [Suspect]
     Active Substance: INFLIXIMAB-DYYB
     Dosage: 10 MG/KG (1130 MG), EVERY 4 WEEKS, REINDUCTION W0, 2 THEN Q4W
     Route: 042
     Dates: start: 20240906
  6. INFLECTRA [Suspect]
     Active Substance: INFLIXIMAB-DYYB
     Dosage: 1130 MG,EVERY 4 WEEKS (10MG/KG,REINDUCTION W0, 2 THEN Q4W )
     Route: 042
     Dates: start: 20241004
  7. CLONAZEPAM [Concomitant]
     Active Substance: CLONAZEPAM
     Dosage: 1 DF
     Route: 065
  8. CORTENEMA [Concomitant]
     Active Substance: HYDROCORTISONE
     Dosage: 1 DF
     Route: 054
     Dates: start: 20221026
  9. PANTOPRAZOLE SODIUM [Concomitant]
     Active Substance: PANTOPRAZOLE SODIUM
     Dosage: 1 DF

REACTIONS (9)
  - Condition aggravated [Recovering/Resolving]
  - Defaecation urgency [Unknown]
  - Arthritis [Not Recovered/Not Resolved]
  - Drug ineffective [Unknown]
  - Anal fissure [Recovered/Resolved]
  - Arthralgia [Recovered/Resolved]
  - Off label use [Unknown]
  - Off label use [Unknown]
  - Intentional product use issue [Unknown]

NARRATIVE: CASE EVENT DATE: 20240101
